FAERS Safety Report 9437181 (Version 1)
Quarter: 2013Q3

REPORT INFORMATION
  Report Type: Report from Study
  Country: MX (occurrence: MX)
  Receive Date: 20130802
  Receipt Date: 20130802
  Transmission Date: 20140515
  Serious: Yes (Other)
  Sender: FDA-Public Use
  Company Number: PHHY2013MX082076

PATIENT
  Age: 67 Year
  Sex: Male

DRUGS (4)
  1. ACLASTA [Suspect]
     Indication: OSTEOPOROSIS
     Dosage: 5MG/100ML (01 INJECTION ANNUALLY)
     Route: 042
     Dates: start: 201306
  2. TYLEX                              /00116401/ [Concomitant]
     Dosage: UNK UKN, UNK
  3. IBUPROFEN [Concomitant]
     Dosage: UNK UKN, UNK
  4. DYNASTAT [Concomitant]
     Dosage: UNK UKN, UNK

REACTIONS (4)
  - Hypokinesia [Recovered/Resolved]
  - Abasia [Recovered/Resolved]
  - Myalgia [Recovered/Resolved]
  - Asthenia [Recovered/Resolved]
